FAERS Safety Report 6661318-5 (Version None)
Quarter: 2010Q1

REPORT INFORMATION
  Report Type: 
  Country: None (occurrence: None)
  Receive Date: 20100331
  Receipt Date: 20100319
  Transmission Date: 20100710
  Serious: Yes (Hospitalization)
  Sender: FDA-Public Use
  Company Number: PHHY2010HU17386

PATIENT
  Age: 41 Year
  Sex: Female

DRUGS (8)
  1. VOLTAREN [Suspect]
     Indication: POSTOPERATIVE ANALGESIA
     Dosage: 75 MG PER 3ML
     Route: 042
  2. CEFAZOLIN [Suspect]
     Indication: INFECTION PROPHYLAXIS
     Dosage: 1 G, UNK
     Route: 042
  3. MIVACRON [Concomitant]
     Dosage: 2 MG/ML
  4. SUFENTANIL [Concomitant]
  5. PROPOFOL [Concomitant]
  6. DORMICUM [Concomitant]
  7. IODINE [Concomitant]
  8. NUBAIN [Concomitant]

REACTIONS (10)
  - ABDOMINAL DISTENSION [None]
  - ACTIVATED PARTIAL THROMBOPLASTIN TIME PROLONGED [None]
  - ANURIA [None]
  - BLOOD FIBRINOGEN DECREASED [None]
  - COAGULOPATHY [None]
  - DIALYSIS [None]
  - DISSEMINATED INTRAVASCULAR COAGULATION [None]
  - HAEMATURIA [None]
  - INTERNATIONAL NORMALISED RATIO INCREASED [None]
  - RENAL FAILURE ACUTE [None]
